FAERS Safety Report 25803588 (Version 1)
Quarter: 2025Q3

REPORT INFORMATION
  Report Type: Report from Study
  Country: US (occurrence: US)
  Receive Date: 20250915
  Receipt Date: 20250915
  Transmission Date: 20251020
  Serious: No
  Sender: LUNDBECK
  Company Number: US-LUNDBECK-DKLU4019185

PATIENT
  Age: 24 Year
  Sex: Female

DRUGS (2)
  1. VYEPTI [Suspect]
     Active Substance: EPTINEZUMAB-JJMR
     Indication: Product used for unknown indication
     Dosage: 300 MILLIGRAM
     Route: 041
     Dates: start: 20241205
  2. RITALIN [Concomitant]
     Active Substance: METHYLPHENIDATE HYDROCHLORIDE
     Indication: Product used for unknown indication

REACTIONS (1)
  - Drug ineffective [Not Recovered/Not Resolved]
